FAERS Safety Report 23680693 (Version 2)
Quarter: 2024Q2

REPORT INFORMATION
  Report Type: Spontaneous
  Country: JP (occurrence: JP)
  Receive Date: 20240328
  Receipt Date: 20240523
  Transmission Date: 20240716
  Serious: Yes (Hospitalization)
  Sender: FDA-Public Use
  Company Number: JP-CHUGAI-2024009452

PATIENT
  Age: 73 Year
  Sex: Female
  Weight: 41 kg

DRUGS (5)
  1. AVASTIN [Suspect]
     Active Substance: BEVACIZUMAB
     Indication: Breast cancer
     Dosage: 400-410MG, ONCE/2WEEKS
     Route: 065
     Dates: start: 20231204, end: 20240205
  2. PACLITAXEL [Suspect]
     Active Substance: PACLITAXEL
     Indication: Breast cancer
     Dosage: THREE DOSES FOLLOWED BY WITHDRAWAL OF ONE DOSE
     Route: 065
     Dates: start: 20231204, end: 20240213
  3. DIPHENHYDRAMINE [Concomitant]
     Active Substance: DIPHENHYDRAMINE
     Dosage: UNK
     Dates: start: 20231204, end: 20240213
  4. TAGAMET [Concomitant]
     Active Substance: CIMETIDINE
     Dosage: UNK
     Dates: start: 20231204, end: 20240213
  5. FILGRASTIM [Concomitant]
     Active Substance: FILGRASTIM
     Dosage: UNK
     Dates: start: 20231218, end: 20240221

REACTIONS (1)
  - Pseudocirrhosis [Not Recovered/Not Resolved]

NARRATIVE: CASE EVENT DATE: 20240228
